FAERS Safety Report 6993031-9 (Version None)
Quarter: 2010Q3

REPORT INFORMATION
  Report Type: 
  Country: None (occurrence: None)
  Receive Date: 20100917
  Receipt Date: 20100909
  Transmission Date: 20110219
  Serious: Yes (Other)
  Sender: FDA-Public Use
  Company Number: US-RB-015134-10

PATIENT
  Sex: Female

DRUGS (4)
  1. SUBOXONE [Suspect]
     Route: 064
     Dates: start: 20091101, end: 20091216
  2. SUBOXONE [Suspect]
     Indication: DRUG DEPENDENCE
     Route: 064
     Dates: start: 20091218, end: 20100105
  3. SUBOXONE [Suspect]
     Route: 064
     Dates: start: 20100106, end: 20100101
  4. SUBUTEX [Suspect]
     Indication: DRUG DEPENDENCE
     Dosage: TAPERING DOSES DOWN TO 1/2 MG DAILY
     Route: 064
     Dates: start: 20100101, end: 20100701

REACTIONS (2)
  - DRUG EXPOSURE DURING PREGNANCY [None]
  - MECONIUM STAIN [None]
